FAERS Safety Report 18657390 (Version 3)
Quarter: 2022Q2

REPORT INFORMATION
  Report Type: Spontaneous
  Country: US (occurrence: US)
  Receive Date: 20201223
  Receipt Date: 20220511
  Transmission Date: 20220721
  Serious: No
  Sender: FDA-Public Use
  Company Number: US-PFIZER INC-2019548720

PATIENT
  Age: 59 Year
  Sex: Female
  Weight: 76.2 kg

DRUGS (1)
  1. PRISTIQ EXTENDED-RELEASE [Suspect]
     Active Substance: DESVENLAFAXINE SUCCINATE
     Indication: Major depression
     Dosage: 50 MG, 1X/DAY
     Route: 048

REACTIONS (4)
  - Weight fluctuation [Unknown]
  - Feeling abnormal [Unknown]
  - Malaise [Unknown]
  - Mental disorder [Unknown]
